FAERS Safety Report 24875874 (Version 2)
Quarter: 2025Q3

REPORT INFORMATION
  Report Type: Report from Study
  Country: US (occurrence: US)
  Receive Date: 20250122
  Receipt Date: 20250803
  Transmission Date: 20251021
  Serious: Yes (Other)
  Sender: ALEXION PHARMACEUTICALS
  Company Number: 2023A261063

PATIENT
  Sex: Female

DRUGS (1)
  1. OLAPARIB [Suspect]
     Active Substance: OLAPARIB
     Indication: Ovarian cancer
     Dosage: 200 MILLIGRAM, BID

REACTIONS (5)
  - Neuropathy peripheral [Unknown]
  - Fatigue [Unknown]
  - Malaise [Unknown]
  - Asthenia [Unknown]
  - Decreased activity [Unknown]
